FAERS Safety Report 15757567 (Version 2)
Quarter: 2019Q1

REPORT INFORMATION
  Report Type: Report from Study
  Country: FR (occurrence: FR)
  Receive Date: 20181224
  Receipt Date: 20190110
  Transmission Date: 20190417
  Serious: Yes (Other)
  Sender: FDA-Public Use
  Company Number: FR-GILEAD-2018-0381472

PATIENT
  Age: 47 Year
  Sex: Male

DRUGS (24)
  1. EMTRICITABINE [Suspect]
     Active Substance: EMTRICITABINE
     Indication: HIV INFECTION
     Dosage: UNK
     Route: 065
  2. ATAZANAVIR. [Suspect]
     Active Substance: ATAZANAVIR
     Indication: HIV INFECTION
     Dosage: UNK
     Route: 065
  3. ZIDOVUDINE. [Suspect]
     Active Substance: ZIDOVUDINE
     Indication: HIV INFECTION
     Dosage: UNK
     Route: 065
  4. INDINAVIR;RITONAVIR [Suspect]
     Active Substance: INDINAVIR\RITONAVIR
     Indication: HIV INFECTION
     Dosage: UNK
     Route: 065
  5. RITONAVIR. [Suspect]
     Active Substance: RITONAVIR
     Indication: HIV INFECTION
     Dosage: UNK
     Route: 065
  6. NEVIRAPINE. [Suspect]
     Active Substance: NEVIRAPINE
     Indication: HIV INFECTION
     Dosage: UNK
     Route: 065
  7. TENOFOVIR DISOPROXIL FUMARATE. [Suspect]
     Active Substance: TENOFOVIR DISOPROXIL FUMARATE
     Indication: HIV INFECTION
     Route: 065
  8. EMTRICITABINE/TENOFOVIR DISOPROXIL FUMARATE [Suspect]
     Active Substance: EMTRICITABINE\TENOFOVIR DISOPROXIL FUMARATE
     Indication: HIV INFECTION
     Route: 065
  9. SAQUINAVIR [Suspect]
     Active Substance: SAQUINAVIR
     Indication: HIV INFECTION
     Dosage: UNK
     Route: 065
  10. ZALCITABINE [Suspect]
     Active Substance: ZALCITABINE
     Indication: HIV INFECTION
     Dosage: UNK
     Route: 065
  11. MARAVIROC [Suspect]
     Active Substance: MARAVIROC
     Indication: HIV INFECTION
     Dosage: UNK
     Route: 065
  12. LAMIVUDINE. [Suspect]
     Active Substance: LAMIVUDINE
     Indication: HIV INFECTION
     Dosage: UNK
     Route: 065
  13. EFAVIRENZ. [Suspect]
     Active Substance: EFAVIRENZ
     Indication: HIV INFECTION
     Dosage: UNK
     Route: 065
  14. ATAZANAVIR;RITONAVIR [Suspect]
     Active Substance: ATAZANAVIR\RITONAVIR
     Indication: HIV INFECTION
     Dosage: UNK
     Route: 065
  15. NELFINAVIR [Suspect]
     Active Substance: NELFINAVIR
     Indication: HIV INFECTION
     Dosage: UNK
     Route: 065
  16. DARUNAVIR [Suspect]
     Active Substance: DARUNAVIR
     Indication: HIV INFECTION
     Dosage: UNK
     Route: 065
  17. RALTEGRAVIR. [Suspect]
     Active Substance: RALTEGRAVIR
     Indication: HIV INFECTION
     Dosage: UNK
     Route: 065
  18. ABACAVIR SULPHATE [Suspect]
     Active Substance: ABACAVIR
     Indication: HIV INFECTION
     Dosage: UNK
     Route: 065
  19. STAVUDINE. [Suspect]
     Active Substance: STAVUDINE
     Indication: HIV INFECTION
     Dosage: UNK
     Route: 065
  20. ETRAVIRINE [Suspect]
     Active Substance: ETRAVIRINE
     Indication: HIV INFECTION
     Dosage: UNK
     Route: 065
  21. DIDANOSINE. [Suspect]
     Active Substance: DIDANOSINE
     Indication: HIV INFECTION
     Dosage: UNK
     Route: 065
  22. AMPRENAVIR [Suspect]
     Active Substance: AMPRENAVIR
     Indication: HIV INFECTION
     Dosage: UNK
     Route: 065
  23. RITONAVIR + TIPRANAVIR [Suspect]
     Active Substance: RITONAVIR\TIPRANAVIR
     Indication: HIV INFECTION
     Dosage: UNK
     Route: 065
  24. DARUNAVIR;RITONAVIR [Suspect]
     Active Substance: DARUNAVIR\RITONAVIR
     Indication: HIV INFECTION
     Dosage: UNK
     Route: 065

REACTIONS (2)
  - Drug resistance [Unknown]
  - Viral mutation identified [Unknown]

NARRATIVE: CASE EVENT DATE: 20090618
